FAERS Safety Report 10255672 (Version 1)
Quarter: 2014Q2

REPORT INFORMATION
  Report Type: Spontaneous
  Country: None (occurrence: None)
  Receive Date: 20140624
  Receipt Date: 20140624
  Transmission Date: 20141212
  Serious: Yes (Other)
  Sender: FDA-Public Use
  Company Number: -GLAXOSMITHKLINE-B1006608A

PATIENT
  Sex: 0

DRUGS (1)
  1. NIQUITIN CQ GUM 4MG [Suspect]

REACTIONS (1)
  - Dependence [Unknown]
